FAERS Safety Report 24965950 (Version 1)
Quarter: 2025Q1

REPORT INFORMATION
  Report Type: Report from Study
  Country: GB (occurrence: GB)
  Receive Date: 20250213
  Receipt Date: 20250213
  Transmission Date: 20250409
  Serious: Yes (Other)
  Sender: NOVARTIS
  Company Number: GB-002147023-NVSC2024GB237215

PATIENT
  Sex: Male

DRUGS (1)
  1. COSENTYX [Suspect]
     Active Substance: SECUKINUMAB
     Indication: Ankylosing spondylitis
     Dosage: 150 MG, QMO, 2 PRE-FILLED DISPOSABLE INJECTION
     Route: 058

REACTIONS (4)
  - Lower respiratory tract infection [Unknown]
  - Infection [Unknown]
  - Cough [Unknown]
  - Wheezing [Unknown]
